FAERS Safety Report 8169182-2 (Version None)
Quarter: 2012Q1

REPORT INFORMATION
  Report Type: 
  Country: None (occurrence: None)
  Receive Date: 20120227
  Receipt Date: 20120216
  Transmission Date: 20120608
  Serious: Yes (Disabling)
  Sender: FDA-Public Use
  Company Number: US-ASTRAZENECA-2011SE78597

PATIENT
  Age: 52 Year
  Sex: Male

DRUGS (2)
  1. PRILOSEC [Suspect]
     Route: 048
  2. NEXIUM [Suspect]
     Route: 048

REACTIONS (5)
  - HAND DEFORMITY [None]
  - MALAISE [None]
  - DRUG DOSE OMISSION [None]
  - BARRETT'S OESOPHAGUS [None]
  - VOMITING [None]
